FAERS Safety Report 16332923 (Version 3)
Quarter: 2019Q4

REPORT INFORMATION
  Report Type: Spontaneous
  Country: US (occurrence: US)
  Receive Date: 20190520
  Receipt Date: 20191004
  Transmission Date: 20200122
  Serious: Yes (Death, Hospitalization, Other)
  Sender: FDA-Public Use
  Company Number: US-PFIZER INC-2019210366

PATIENT
  Age: 66 Year
  Sex: Female

DRUGS (27)
  1. ALLEGRA [Concomitant]
     Active Substance: FEXOFENADINE HYDROCHLORIDE
     Dosage: 180 MG, DAILY
     Route: 048
  2. LASIX [Concomitant]
     Active Substance: FUROSEMIDE
     Indication: ASCITES
     Dosage: 40 MG, DAILY
     Route: 048
     Dates: start: 20190510
  3. NOXAFIL [Concomitant]
     Active Substance: POSACONAZOLE
     Dosage: 100 MG, 2X/DAY
     Route: 048
  4. ALDACTONE [Concomitant]
     Active Substance: SPIRONOLACTONE
     Indication: OEDEMA
     Dosage: 100 MG, 2X/DAY
     Route: 048
     Dates: start: 20190510
  5. PERIACTIN [Concomitant]
     Active Substance: CYPROHEPTADINE HYDROCHLORIDE
     Dosage: 4 MG, AS NEEDED (THREE TIMES DAILY AS NEEDED)
     Route: 048
  6. ATROVENT [Concomitant]
     Active Substance: IPRATROPIUM BROMIDE
     Indication: DYSPNOEA
     Dosage: UNK UNK, 2X/DAY (2 SPRAYS BY INTRANASAL ROUTE EVERY 12  (TWELVE) HOURS)
     Route: 045
     Dates: start: 20190305
  7. MAGO [MAGNESIUM OXIDE] [Concomitant]
     Indication: HYPOMAGNESAEMIA
     Dosage: 400 MG, 2X/DAY (FOR 14 DAYS)
     Route: 048
     Dates: start: 20190510
  8. CHRONULAC [Concomitant]
     Active Substance: LACTULOSE
     Indication: CONSTIPATION
     Dosage: 30 ML, 2X/DAY
     Route: 048
  9. LEVAQUIN [Concomitant]
     Active Substance: LEVOFLOXACIN
     Indication: OVARIAN CANCER
     Dosage: 500 MG, DAILY
     Route: 048
     Dates: start: 20190511, end: 20190521
  10. GLUCOPHAGE [Concomitant]
     Active Substance: METFORMIN HYDROCHLORIDE
     Indication: TYPE 2 DIABETES MELLITUS
     Dosage: 500 MG, 2X/DAY (WITH MEALS)
     Route: 048
     Dates: start: 20190320
  11. LASIX [Concomitant]
     Active Substance: FUROSEMIDE
     Dosage: 100 MG, 2X/DAY
  12. ULTRAM [Concomitant]
     Active Substance: TRAMADOL HYDROCHLORIDE
     Indication: PAIN
     Dosage: 50 MG, AS NEEDED (EVERY 6 (SIX) HOURS AS NEEDED)
     Route: 048
  13. CEPHULAC [Concomitant]
     Active Substance: LACTULOSE
     Dosage: 10 G PACKET
  14. NOXAFIL [Concomitant]
     Active Substance: POSACONAZOLE
     Dosage: 300 MG, DAILY (3 TABLETS DAILY)
     Route: 048
  15. MORPHINE SULFATE ANHYDROUS [Concomitant]
     Indication: CANCER PAIN
     Dosage: 0.5 ML, AS NEEDED (EVERY 2 (TWO) HOURS AS NEEDED )
     Route: 048
  16. TUSSIONEX PENNKINETIC [Concomitant]
     Active Substance: CHLORPHENIRAMINE\HYDROCODONE
     Indication: COUGH
     Dosage: 10 ML, AS NEEDED [EVERY 12 (TWELVE)  HOURS AS NEEDED FOR COUGH]
     Route: 048
     Dates: start: 20190411
  17. BESPONSA [Suspect]
     Active Substance: INOTUZUMAB OZOGAMICIN
     Indication: ACUTE LYMPHOCYTIC LEUKAEMIA
     Dosage: 0.5 MG/M2, UNK (6 CYCLES)
     Route: 042
     Dates: start: 20180720, end: 20181227
  18. ATROVENT [Concomitant]
     Active Substance: IPRATROPIUM BROMIDE
     Indication: COUGH
  19. ALDACTONE [Concomitant]
     Active Substance: SPIRONOLACTONE
     Dosage: 100 MG, DAILY
     Route: 048
  20. VALTREX [Concomitant]
     Active Substance: VALACYCLOVIR HYDROCHLORIDE
     Indication: ACUTE LEUKAEMIA
     Dosage: 500 MG, 2X/DAY (EVERY 12 (TWELVE) HOURS)
     Route: 048
     Dates: start: 20190305
  21. CHRONULAC [Concomitant]
     Active Substance: LACTULOSE
     Indication: HEPATIC ENCEPHALOPATHY
     Dosage: 45 ML, 2X/DAY ((30 G TOTAL) (20 GRAM/30 ML  )
     Route: 048
     Dates: start: 20190510
  22. ZOFRAN [Concomitant]
     Active Substance: ONDANSETRON HYDROCHLORIDE
     Indication: NAUSEA
     Dosage: 4 MG, AS NEEDED (DAILY AS NEEDED ) (EVERY 8 HOURS)
     Route: 048
     Dates: start: 20190411
  23. VANCOMYCIN [Concomitant]
     Active Substance: VANCOMYCIN
     Dosage: 2.5 ML, 4X/DAY [2.5 MLS (125 MG TOTAL) BY MOUTH EVERY 6 (SIX) HOURS FOR 8 DAYS]
     Route: 048
     Dates: start: 20190510, end: 20190518
  24. FLOVENT HFA [Concomitant]
     Active Substance: FLUTICASONE PROPIONATE
     Indication: COUGH
     Dosage: UNK UNK, 2X/DAY (LNHALE 1 PUFF INTO THE LUNGS 2 (TWO) TIMES DAILY)
     Dates: start: 20190226
  25. ACTIGALL [Concomitant]
     Active Substance: URSODIOL
     Indication: VENOOCCLUSIVE LIVER DISEASE
     Dosage: 300 MG, 2X/DAY
     Route: 048
     Dates: start: 20190317
  26. ACTIGALL [Concomitant]
     Active Substance: URSODIOL
     Indication: ACUTE LYMPHOCYTIC LEUKAEMIA
  27. DURAGESIC [Concomitant]
     Active Substance: FENTANYL
     Indication: PAIN
     Dosage: 25 UG/HR

REACTIONS (18)
  - Venoocclusive disease [Unknown]
  - Chronic hepatic failure [Unknown]
  - Laboratory test abnormal [Unknown]
  - Clostridium difficile infection [Unknown]
  - Constipation [Unknown]
  - Feeling abnormal [Unknown]
  - Nausea [Unknown]
  - Ascites [Unknown]
  - Oedema peripheral [Unknown]
  - Transaminases increased [Unknown]
  - Asthenia [Unknown]
  - Hepatic encephalopathy [Unknown]
  - Confusional state [Unknown]
  - Vomiting [Unknown]
  - Death [Fatal]
  - Haemoptysis [Recovered/Resolved]
  - Acute kidney injury [Unknown]
  - Decreased appetite [Unknown]

NARRATIVE: CASE EVENT DATE: 20190205
